FAERS Safety Report 24936439 (Version 1)
Quarter: 2025Q1

REPORT INFORMATION
  Report Type: Other
  Country: US (occurrence: US)
  Receive Date: 20250206
  Receipt Date: 20250206
  Transmission Date: 20250408
  Serious: No
  Sender: TRAVERE THERAPEUTICS
  Company Number: US-TRAVERE-2025TVT00120

PATIENT
  Sex: Female

DRUGS (3)
  1. FILSPARI [Suspect]
     Active Substance: SPARSENTAN
     Indication: Haematuria
     Dosage: 200 MG 1 TABLET, ONCE A DAY FOR 1-14 DAYS
     Route: 048
  2. FILSPARI [Suspect]
     Active Substance: SPARSENTAN
     Indication: Chronic kidney disease
     Dosage: 200 MG 2 TABLETS, ONCE A DAY FOR 15-30 DAYS
     Route: 048
     Dates: start: 202412
  3. FILSPARI [Suspect]
     Active Substance: SPARSENTAN
     Indication: Proteinuria

REACTIONS (2)
  - Dizziness [None]
  - Product use in unapproved indication [Unknown]
